FAERS Safety Report 9109891 (Version 1)
Quarter: 2013Q1

REPORT INFORMATION
  Report Type: Spontaneous
  Country: US (occurrence: US)
  Receive Date: 20130222
  Receipt Date: 20130222
  Transmission Date: 20140127
  Serious: Yes (Hospitalization, Other)
  Sender: FDA-Public Use
  Company Number: US-BRISTOL-MYERS SQUIBB COMPANY-17385048

PATIENT
  Age: 85 Year
  Sex: Female
  Weight: 69.84 kg

DRUGS (4)
  1. COUMADIN [Suspect]
     Indication: ATRIAL FIBRILLATION
  2. CELEBREX [Suspect]
     Indication: ARTHRITIS
  3. VENTOLIN [Concomitant]
     Indication: ASTHMA
  4. SYMBICORT [Concomitant]
     Indication: CHRONIC OBSTRUCTIVE PULMONARY DISEASE

REACTIONS (5)
  - Vertigo [Unknown]
  - Asthenia [Unknown]
  - Breast cancer recurrent [Unknown]
  - Bone disorder [Unknown]
  - Spinal disorder [Unknown]
